FAERS Safety Report 8234311-9 (Version None)
Quarter: 2012Q1

REPORT INFORMATION
  Report Type: 
  Country: None (occurrence: None)
  Receive Date: 20120326
  Receipt Date: 20120316
  Transmission Date: 20120608
  Serious: Yes (Hospitalization)
  Sender: FDA-Public Use
  Company Number: US-NOVOPROD-347479

PATIENT
  Age: 76 Year
  Sex: Female
  Weight: 53.515 kg

DRUGS (2)
  1. LEVEMIR [Suspect]
     Indication: TYPE 2 DIABETES MELLITUS
     Dosage: 12 U, QD
     Route: 058
     Dates: start: 20050101
  2. NOVOLOG [Suspect]
     Indication: TYPE 2 DIABETES MELLITUS
     Dosage: SLIDING SCALE
     Route: 058
     Dates: start: 20050101

REACTIONS (4)
  - BLOOD IRON DECREASED [None]
  - HERPES ZOSTER [None]
  - BLOOD GLUCOSE FLUCTUATION [None]
  - WHITE BLOOD CELL COUNT DECREASED [None]
